FAERS Safety Report 13389619 (Version 2)
Quarter: 2017Q1

REPORT INFORMATION
  Report Type: Report from Study
  Country: US (occurrence: US)
  Receive Date: 20170330
  Receipt Date: 20170330
  Transmission Date: 20170429
  Serious: Yes (Other)
  Sender: FDA-Public Use
  Company Number: PHEH2017US009106

PATIENT
  Sex: Female

DRUGS (2)
  1. SANDIMMUNE [Suspect]
     Active Substance: CYCLOSPORINE
     Indication: LIVER TRANSPLANT
     Route: 065
  2. PREDNISON [Suspect]
     Active Substance: PREDNISONE
     Indication: LIVER TRANSPLANT
     Route: 065

REACTIONS (6)
  - Blood calcium abnormal [Unknown]
  - Chondropathy [Unknown]
  - Liver transplant rejection [Unknown]
  - Maternal exposure during pregnancy [Unknown]
  - Arthritis [Unknown]
  - Finger deformity [Unknown]
